FAERS Safety Report 9890366 (Version 1)
Quarter: 2014Q1

REPORT INFORMATION
  Report Type: Spontaneous
  Country: US (occurrence: None)
  Receive Date: 20140211
  Receipt Date: 20140211
  Transmission Date: 20141002
  Serious: Yes (Other)
  Sender: FDA-Public Use
  Company Number: None

PATIENT
  Age: 69 Year
  Sex: Male
  Weight: 70.31 kg

DRUGS (1)
  1. LIDOCAINE PATCH [Suspect]
     Indication: NEURALGIA
     Dosage: 2-3 PATCHES ONCE DAILY APPLIED TO A SURFACE, USUALY THE SKIN
     Dates: start: 20140201, end: 20140209

REACTIONS (5)
  - Drug ineffective [None]
  - Product substitution issue [None]
  - Product quality issue [None]
  - Product adhesion issue [None]
  - Device physical property issue [None]
